FAERS Safety Report 8884562 (Version 1)
Quarter: 2012Q4

REPORT INFORMATION
  Report Type: 
  Country: AT (occurrence: AT)
  Receive Date: 20121104
  Receipt Date: 20121104
  Transmission Date: 20130627
  Serious: Yes (Death, Hospitalization)
  Sender: FDA-Public Use
  Company Number: AT-BRISTOL-MYERS SQUIBB COMPANY-17097783

PATIENT
  Age: 77 Year
  Sex: Female
  Weight: 55 kg

DRUGS (15)
  1. ERBITUX SOLN FOR INF [Suspect]
     Indication: TONGUE NEOPLASM MALIGNANT STAGE UNSPECIFIED
     Route: 042
     Dates: start: 20120116, end: 20120206
  2. FENTANYL [Concomitant]
     Indication: PAIN
     Dosage: Fentoron
     Route: 062
     Dates: start: 20120116, end: 20120226
  3. KEPPRA [Concomitant]
     Indication: EPILEPSY
     Route: 042
     Dates: start: 20120213, end: 20120226
  4. PARKEMED [Concomitant]
     Indication: PAIN
     Route: 048
     Dates: start: 20120117, end: 20120226
  5. ESTRIOL [Concomitant]
     Indication: OESTROGEN DEFICIENCY
     Dosage: Orthogynest
     Dates: start: 20020813, end: 20120226
  6. SIMVASTATIN [Concomitant]
     Indication: HYPERCHOLESTEROLAEMIA
     Route: 048
     Dates: start: 2006, end: 20120226
  7. SERMION [Concomitant]
     Indication: PERFORMANCE STATUS DECREASED
     Route: 048
     Dates: start: 2006, end: 20120226
  8. FOSAMAX [Concomitant]
     Indication: OSTEOPOROSIS
     Route: 048
     Dates: start: 2006, end: 20120226
  9. RENITEC [Concomitant]
  10. VASERETIC [Concomitant]
     Indication: HYPERTENSION
     Dosage: 1DF: 20/6MG, Renitec plus
     Route: 048
     Dates: start: 2006, end: 20120226
  11. XALATAN [Concomitant]
     Indication: GLAUCOMA
     Dosage: AT
     Dates: start: 2006, end: 20120226
  12. COSOPT [Concomitant]
     Indication: GLAUCOMA
     Dosage: 1DF: 20/5 mg
AT
     Dates: start: 2006, end: 20120226
  13. REPARIL [Concomitant]
     Indication: PHLEBITIS
     Route: 048
     Dates: start: 20120117, end: 20120226
  14. DAFLON [Concomitant]
     Indication: VENOUS INSUFFICIENCY
     Route: 048
  15. MINOCYCLINE [Concomitant]
     Indication: PROPHYLAXIS
     Route: 048
     Dates: start: 20120116, end: 20120206

REACTIONS (3)
  - Cancer pain [Fatal]
  - Atrioventricular block [Fatal]
  - Rash [Unknown]
